FAERS Safety Report 17481603 (Version 1)
Quarter: 2020Q1

REPORT INFORMATION
  Report Type: Spontaneous
  Country: US (occurrence: US)
  Receive Date: 20200302
  Receipt Date: 20200302
  Transmission Date: 20200409
  Serious: No
  Sender: FDA-Public Use
  Company Number: US-009507513-2002USA009163

PATIENT
  Age: 68 Year
  Sex: Female

DRUGS (6)
  1. ASPIRIN. [Concomitant]
     Active Substance: ASPIRIN
  2. FOSAMAX [Suspect]
     Active Substance: ALENDRONATE SODIUM
     Indication: OSTEOPOROSIS
     Dosage: ONE PILL PER DAY FOR 12 DAYS (TOOK A 3 MONTH SUPPLY OF MEDICATION IN 12 DAYS)
     Route: 048
  3. PRINIVIL [Concomitant]
     Active Substance: LISINOPRIL
  4. ZEBETA [Concomitant]
     Active Substance: BISOPROLOL FUMARATE
  5. METFORMIN [Concomitant]
     Active Substance: METFORMIN HYDROCHLORIDE
  6. CRESTOR [Concomitant]
     Active Substance: ROSUVASTATIN CALCIUM

REACTIONS (3)
  - Vomiting [Not Recovered/Not Resolved]
  - Nausea [Not Recovered/Not Resolved]
  - Accidental overdose [Unknown]
